FAERS Safety Report 9201894 (Version 1)
Quarter: 2013Q2

REPORT INFORMATION
  Report Type: Report from Study
  Country: KR (occurrence: KR)
  Receive Date: 20130401
  Receipt Date: 20130401
  Transmission Date: 20140414
  Serious: Yes (Disabling, Other)
  Sender: FDA-Public Use
  Company Number: KR-ROCHE-1207443

PATIENT
  Sex: 0

DRUGS (2)
  1. PEG-INTERFERON ALFA 2A [Suspect]
     Indication: CHRONIC HEPATITIS B
     Dosage: FOR 48 WEEKS
     Route: 058
  2. THYMOSIN ALPHA [Suspect]
     Indication: CHRONIC HEPATITIS B
     Dosage: FOR FIRST 12 WEEKS
     Route: 058

REACTIONS (6)
  - Neutropenia [Unknown]
  - Alanine aminotransferase increased [Unknown]
  - Psychiatric symptom [Unknown]
  - Thyroiditis [Unknown]
  - Blindness [Unknown]
  - Uveitis [Unknown]
